FAERS Safety Report 24551603 (Version 1)
Quarter: 2024Q4

REPORT INFORMATION
  Report Type: Other
  Country: AU (occurrence: AU)
  Receive Date: 20241026
  Receipt Date: 20241026
  Transmission Date: 20250115
  Serious: Yes (Other)
  Sender: LUPIN
  Company Number: AU-LUPIN PHARMACEUTICALS INC.-2024-10285

PATIENT

DRUGS (2)
  1. METFORMIN HYDROCHLORIDE [Suspect]
     Active Substance: METFORMIN HYDROCHLORIDE
     Indication: Product used for unknown indication
     Dosage: UNK
     Route: 065
  2. MIXTARD HUMAN 70/30 [Suspect]
     Active Substance: INSULIN HUMAN
     Indication: Product used for unknown indication
     Dosage: UNK
     Route: 065

REACTIONS (9)
  - Blood glucose decreased [Unknown]
  - Diabetes mellitus inadequate control [Unknown]
  - Fall [Unknown]
  - Gluten sensitivity [Unknown]
  - Joint arthroplasty [Unknown]
  - Lactose intolerance [Unknown]
  - Lower limb fracture [Unknown]
  - Nosocomial infection [Unknown]
  - Osteoporosis [Unknown]
